FAERS Safety Report 24432552 (Version 1)
Quarter: 2024Q4

REPORT INFORMATION
  Report Type: Spontaneous
  Country: PL (occurrence: PL)
  Receive Date: 20241014
  Receipt Date: 20241014
  Transmission Date: 20250114
  Serious: Yes (Death)
  Sender: CELLTRION
  Company Number: PL-CELLTRION INC.-2024PL024595

PATIENT

DRUGS (9)
  1. RITUXIMAB [Suspect]
     Active Substance: RITUXIMAB
     Indication: Lung adenocarcinoma stage IV
     Dosage: RITUXIMAB/BEDNAMUSTINE TWICE
  2. RITUXIMAB [Suspect]
     Active Substance: RITUXIMAB
     Dosage: R-CHOP
  3. RITUXIMAB [Suspect]
     Active Substance: RITUXIMAB
     Dosage: VENETOCLAX + RITUXIMAB
     Dates: end: 202209
  4. RITUXIMAB [Suspect]
     Active Substance: RITUXIMAB
     Dosage: RESCUE THERAPY
  5. BENDAMUSTINE [Suspect]
     Active Substance: BENDAMUSTINE
     Indication: Product used for unknown indication
     Dosage: RITUXIMAB/BEDNAMUSTINE TWICE
  6. CYCLOPHOSPHAMIDE\DOXORUBICIN\PREDNISONE\VINCRISTINE [Suspect]
     Active Substance: CYCLOPHOSPHAMIDE\DOXORUBICIN\PREDNISONE\VINCRISTINE
     Indication: Product used for unknown indication
     Dosage: R-CHOP
  7. VENETOCLAX [Suspect]
     Active Substance: VENETOCLAX
     Indication: Product used for unknown indication
     Dosage: VENETOCLAX + RITUXIMAB
     Dates: end: 202209
  8. METHYLPREDNISOLONE [Suspect]
     Active Substance: METHYLPREDNISOLONE
     Indication: Lung adenocarcinoma stage IV
     Dosage: RESCUE THERAPY
  9. ERLOTINIB [Suspect]
     Active Substance: ERLOTINIB
     Indication: Lung adenocarcinoma stage IV

REACTIONS (2)
  - Infection [Fatal]
  - Drug effective for unapproved indication [Unknown]
